FAERS Safety Report 9510732 (Version 4)
Quarter: 2014Q1

REPORT INFORMATION
  Report Type: Report from Study
  Country: GB (occurrence: GB)
  Receive Date: 20130910
  Receipt Date: 20140225
  Transmission Date: 20141002
  Serious: Yes (Hospitalization)
  Sender: FDA-Public Use
  Company Number: GB-AMGEN-GBRSP2013062633

PATIENT
  Age: 50 Year
  Sex: Female
  Weight: 65 kg

DRUGS (5)
  1. ETANERCEPT [Suspect]
     Indication: PRODUCT USED FOR UNKNOWN INDICATION
     Dosage: 25 MG, 2 TIMES/WK
     Route: 065
     Dates: start: 20130822, end: 20130822
  2. DICLOFENAC [Concomitant]
     Indication: RHEUMATOID ARTHRITIS
     Dosage: 50 MG, 3X/DAY
     Route: 048
  3. DHC [Concomitant]
     Indication: RHEUMATOID ARTHRITIS
     Dosage: 30 MG, 3X/DAY
     Route: 048
  4. ESOMEPRAZOLE [Concomitant]
     Indication: GASTROOESOPHAGEAL REFLUX DISEASE
     Dosage: 40 MG, 1X/DAY
     Route: 048
     Dates: start: 2010
  5. ADCAL D3 [Concomitant]
     Indication: PROPHYLAXIS
     Dosage: 2 DF, 1X/DAY
     Route: 048
     Dates: start: 2011

REACTIONS (1)
  - Anaphylactic reaction [Recovered/Resolved]
